FAERS Safety Report 6865702-6 (Version None)
Quarter: 2010Q3

REPORT INFORMATION
  Report Type: 
  Country: None (occurrence: None)
  Receive Date: 20100721
  Receipt Date: 20080430
  Transmission Date: 20110219
  Serious: No
  Sender: FDA-Public Use
  Company Number: US-PFIZER INC-2008038489

PATIENT
  Sex: Female
  Weight: 84.1 kg

DRUGS (5)
  1. CHANTIX [Suspect]
     Indication: SMOKING CESSATION THERAPY
     Dates: start: 20080401
  2. SUDAFED 12 HOUR [Concomitant]
     Dates: start: 20080401
  3. FLUOXETINE [Concomitant]
  4. CELEBREX [Concomitant]
  5. PROTONIX [Concomitant]

REACTIONS (1)
  - PRURITUS [None]
